FAERS Safety Report 7232606-9 (Version None)
Quarter: 2011Q1

REPORT INFORMATION
  Report Type: 
  Country: None (occurrence: None)
  Receive Date: 20110119
  Receipt Date: 20110107
  Transmission Date: 20110831
  Serious: Yes (Other)
  Sender: FDA-Public Use
  Company Number: US-SP-2006-01566

PATIENT
  Sex: Male

DRUGS (11)
  1. TUBERCULIN NOS [Suspect]
     Indication: IMMUNISATION
     Route: 065
     Dates: start: 19650317, end: 19650317
  2. INFLUENZA VACCINE [Suspect]
     Indication: IMMUNISATION
     Route: 065
     Dates: start: 19671024, end: 19671024
  3. MENINGOCOCCAL VACCINE [Suspect]
     Indication: IMMUNISATION
     Route: 065
     Dates: start: 19690401, end: 19690401
  4. POLIOVIRUS VACCINE LIVE ORAL [Suspect]
     Indication: IMMUNISATION
     Route: 065
     Dates: start: 19650317, end: 19650317
  5. SMALLPOX VACCINE [Suspect]
     Indication: IMMUNISATION
     Route: 065
     Dates: start: 19650317, end: 19650317
  6. TYPHOID VACCINE [Suspect]
     Indication: IMMUNISATION
     Route: 065
     Dates: start: 19650317, end: 19650317
  7. TYPHUS VACCINE [Suspect]
     Indication: IMMUNISATION
     Route: 065
     Dates: start: 19650328, end: 19650328
  8. TETANUS TOXOID [Suspect]
     Indication: IMMUNISATION
     Route: 065
     Dates: start: 19650317, end: 19650317
  9. YELLOW FEVER VACCINE [Suspect]
     Indication: IMMUNISATION
     Route: 065
     Dates: start: 19650327, end: 19650327
  10. CHOLERA VACCINE [Suspect]
     Indication: IMMUNISATION
     Route: 065
     Dates: start: 19650920, end: 19650920
  11. UNKNOWN VACCINE [Suspect]
     Indication: IMMUNISATION
     Route: 065
     Dates: start: 19650327, end: 19650327

REACTIONS (6)
  - GAIT DISTURBANCE [None]
  - MUSCULAR WEAKNESS [None]
  - HEPATITIS C [None]
  - PAIN IN EXTREMITY [None]
  - DISABILITY [None]
  - KNEE DEFORMITY [None]
